FAERS Safety Report 12832083 (Version 1)
Quarter: 2016Q4

REPORT INFORMATION
  Report Type: Spontaneous
  Country: FR (occurrence: FR)
  Receive Date: 20161010
  Receipt Date: 20161010
  Transmission Date: 20170207
  Serious: Yes (Hospitalization, Other)
  Sender: FDA-Public Use
  Company Number: FR-BRISTOL-MYERS SQUIBB COMPANY-BMS-2016-083304

PATIENT
  Age: 49 Year
  Sex: Male

DRUGS (1)
  1. OPDIVO [Suspect]
     Active Substance: NIVOLUMAB
     Indication: BRONCHIAL CARCINOMA
     Dosage: 3 MG/KG, Q2WK
     Route: 042
     Dates: start: 20160208

REACTIONS (3)
  - Toxic nodular goitre [Recovered/Resolved with Sequelae]
  - Thyroidectomy [Unknown]
  - Hyperthyroidism [Recovered/Resolved with Sequelae]

NARRATIVE: CASE EVENT DATE: 20160321
